FAERS Safety Report 4709599-9 (Version None)
Quarter: 2005Q3

REPORT INFORMATION
  Report Type: 
  Country: None (occurrence: None)
  Receive Date: 20050707
  Receipt Date: 20050624
  Transmission Date: 20060218
  Serious: Yes (Hospitalization)
  Sender: FDA-Public Use
  Company Number: US-2005--009962

PATIENT
  Age: 19 Year
  Sex: Female
  Weight: 77.3 kg

DRUGS (17)
  1. CAMPATH [Suspect]
     Indication: RENAL TRANSPLANT
     Dosage: 20 MG, 1 DOSE, INTRAVENOUS
     Route: 042
     Dates: start: 20040623, end: 20040623
  2. CAMPATH [Suspect]
     Indication: RENAL TRANSPLANT
     Dosage: 20 MG, 1 DOSE, INTRAVENOUS
     Route: 042
     Dates: start: 20040627, end: 20040627
  3. NYSTATIN [Concomitant]
  4. FLORINEF [Concomitant]
  5. NORVASC/DEN(AMLODIPINE BESILATE) [Concomitant]
  6. PROTONIX [Concomitant]
  7. ASPIRIN [Concomitant]
  8. MAALOX/NET/(MAGNESIUM HYDROXIDE, ALGELDRATE) [Concomitant]
  9. POTASSIUM PHOSPHATE DIBASIC (POTASSIUM PHOSPHATE DIBASIC) [Concomitant]
  10. MAGNESIUM (MAGNESIUM) [Concomitant]
  11. FOLIC ACID [Concomitant]
  12. CARAFATE [Concomitant]
  13. BENADRYL ^ACHE^ (AMMONIUM CHLORIDE, DIPHENHYDRAMINE HYDROCHLORIDE, MEN [Concomitant]
  14. HYDROCORTISONE [Concomitant]
  15. METHYLPREDNISOLONE 16MG TAB [Concomitant]
  16. TACROLIMUS (TACROMLIMUS) [Concomitant]
  17. TYLENOL [Concomitant]

REACTIONS (6)
  - BLOOD CHLORIDE INCREASED [None]
  - GLOMERULONEPHRITIS PROLIFERATIVE [None]
  - HAEMATOCRIT DECREASED [None]
  - RENAL ARTERIOSCLEROSIS [None]
  - RENAL TRANSPLANT [None]
  - WHITE BLOOD CELL COUNT DECREASED [None]
